FAERS Safety Report 4292193-4 (Version None)
Quarter: 2004Q1

REPORT INFORMATION
  Report Type: 
  Country: None (occurrence: None)
  Receive Date: 20040126
  Receipt Date: 20031103
  Transmission Date: 20041129
  Serious: No
  Sender: FDA-Public Use
  Company Number: USA031151515

PATIENT
  Age: 79 Year
  Sex: Female

DRUGS (1)
  1. FORTEO [Suspect]
     Indication: BONE DISORDER
     Dosage: 20 UG/DAY
     Dates: start: 20031031

REACTIONS (3)
  - DIZZINESS [None]
  - FATIGUE [None]
  - VERTIGO [None]
